FAERS Safety Report 8778000 (Version 2)
Quarter: 2012Q4

REPORT INFORMATION
  Report Type: 
  Country: US (occurrence: US)
  Receive Date: 20120911
  Receipt Date: 20121017
  Transmission Date: 20130627
  Serious: No
  Sender: FDA-Public Use
  Company Number: US-PFIZER INC-2012221474

PATIENT
  Sex: Male

DRUGS (1)
  1. ADVIL [Suspect]
     Dosage: UNK
     Route: 048

REACTIONS (5)
  - Depression [Recovered/Resolved]
  - Decreased appetite [Unknown]
  - Musculoskeletal pain [Recovering/Resolving]
  - Arthritis [Recovering/Resolving]
  - Drug withdrawal syndrome [Recovered/Resolved]
